FAERS Safety Report 4399674-3 (Version None)
Quarter: 2004Q3

REPORT INFORMATION
  Report Type: 
  Country: None (occurrence: None)
  Receive Date: 20040713
  Receipt Date: 20040630
  Transmission Date: 20050211
  Serious: Yes (Death, Hospitalization)
  Sender: FDA-Public Use
  Company Number: 04H-163-0265324-00

PATIENT
  Age: 38 Year
  Sex: Female

DRUGS (7)
  1. HEPARIN SODIUM INJETION (HEPARIN SODIUM) (HEPARIN SODIUM) [Suspect]
     Indication: ABORTION SPONTANEOUS
     Dosage: 5000 UNIT, 2 IN 1 D, SUBCUTANEOUS
     Route: 058
  2. HEPARIN SODIUM INJETION (HEPARIN SODIUM) (HEPARIN SODIUM) [Suspect]
     Indication: PROPHYLAXIS
     Dosage: 5000 UNIT, 2 IN 1 D, SUBCUTANEOUS
     Route: 058
  3. ASPIRIN [Suspect]
     Indication: ABORTION SPONTANEOUS
     Dosage: 81 MG, 1 IN 1 D, PER ORAL
     Route: 048
  4. ASPIRIN [Suspect]
     Indication: PROPHYLAXIS
     Dosage: 81 MG, 1 IN 1 D, PER ORAL
     Route: 048
  5. IMMUNOGLOBULIN HUMAN NORMAL [Concomitant]
  6. ESTROGEN NOS [Concomitant]
  7. PROGESTERONE [Concomitant]

REACTIONS (8)
  - ANXIETY [None]
  - BRAIN DEATH [None]
  - BRAIN OEDEMA [None]
  - CEREBRAL ARTERIOVENOUS MALFORMATION HAEMORRHAGIC [None]
  - DRUG EXPOSURE DURING PREGNANCY [None]
  - LOSS OF CONSCIOUSNESS [None]
  - NAUSEA [None]
  - OFF LABEL USE [None]
